FAERS Safety Report 4849591-7 (Version None)
Quarter: 2005Q4

REPORT INFORMATION
  Report Type: 
  Country: None (occurrence: None)
  Receive Date: 20051207
  Receipt Date: 20051125
  Transmission Date: 20060501
  Serious: Yes (Hospitalization)
  Sender: FDA-Public Use
  Company Number: 2005135787

PATIENT
  Age: 73 Year
  Sex: Male
  Weight: 59 kg

DRUGS (12)
  1. EPIRUBICIN [Suspect]
     Indication: BLADDER CANCER
     Dosage: (1 IN 1 WK), OTHER
     Route: 050
     Dates: start: 20050908
  2. TICLOPIDINE HCL [Concomitant]
  3. ASPIRIN [Concomitant]
  4. AMLODIPINE [Concomitant]
  5. ISOSORBIDE MONONITRATE [Concomitant]
  6. LASIX [Concomitant]
  7. DISOPYRAMIDE [Concomitant]
  8. RABEPRAZOLE SODIUM [Concomitant]
  9. AMOBAN (ZOPICLONE) [Concomitant]
  10. EVIPROSTAT (CHIMAPHILA UMBELLATA, EQUISETUM ARVENSE, MANGANESE CHLORID [Concomitant]
  11. HARNAL (TAMSULOSIN HYDROCHLORIDE) [Concomitant]
  12. MARZULENE (SODIUM GUALENATE) [Concomitant]

REACTIONS (2)
  - BLOOD CREATININE INCREASED [None]
  - DIALYSIS [None]
